FAERS Safety Report 7520744-2 (Version None)
Quarter: 2011Q2

REPORT INFORMATION
  Report Type: 
  Country: None (occurrence: None)
  Receive Date: 20110603
  Receipt Date: 20101108
  Transmission Date: 20111010
  Serious: Yes (Hospitalization, Other)
  Sender: FDA-Public Use
  Company Number: US-BAYER-200943151NA

PATIENT
  Age: 26 Year
  Sex: Female
  Weight: 95 kg

DRUGS (20)
  1. TYLENOL-500 [Concomitant]
     Indication: HEADACHE
     Dosage: UNK UNK, PRN
     Route: 048
     Dates: end: 20080215
  2. IBUPROFEN [Concomitant]
     Dosage: UNK
  3. BACLOFEN [Concomitant]
     Dosage: UNK
     Dates: start: 20080501
  4. YAZ [Suspect]
     Indication: PREMENSTRUAL SYNDROME
  5. IBUPROFEN [Concomitant]
     Indication: DYSMENORRHOEA
     Dosage: 200 MG (DAILY DOSE), PRN, ORAL
     Route: 048
     Dates: end: 20080215
  6. ERY-TAB [Concomitant]
     Dosage: UNK
     Dates: start: 20070601
  7. DROSPIRENONE AND ETHINYL ESTRADIOL [Suspect]
     Indication: PRODUCT USED FOR UNKNOWN INDICATION
     Dates: start: 20040101, end: 20080315
  8. HYDROCODONE BITARTRATE [Concomitant]
     Indication: MIGRAINE
     Route: 048
     Dates: start: 20031001
  9. BENADRYL [Concomitant]
     Indication: MULTIPLE ALLERGIES
     Dosage: 25 MG (DAILY DOSE), PRN, ORAL
     Route: 048
     Dates: end: 20080215
  10. YASMIN [Suspect]
     Indication: CONTRACEPTION
     Dates: start: 20000101, end: 20060615
  11. YASMIN [Suspect]
     Indication: PREMENSTRUAL SYNDROME
  12. SUDAFED 12 HOUR [Concomitant]
     Indication: MULTIPLE ALLERGIES
     Route: 048
     Dates: end: 20080215
  13. LEXAPRO [Concomitant]
     Indication: DEPRESSION
     Dosage: 20 MG (DAILY DOSE), QD, ORAL
     Route: 048
  14. SKELAXIN [Concomitant]
     Dosage: UNK
     Dates: start: 20070501
  15. XANAX [Concomitant]
     Indication: ANXIETY
     Route: 048
  16. ALPRAZOLAM [Concomitant]
  17. YAZ [Suspect]
     Indication: PAIN
     Dates: start: 20070101, end: 20080615
  18. NAPROXEN (ALEVE) [Concomitant]
     Indication: HEADACHE
     Route: 048
     Dates: end: 20080215
  19. TYLENOL-500 [Concomitant]
     Indication: PAIN
  20. BUPROPION HYDROCHLORIDE [Suspect]
     Dosage: UNK
     Dates: start: 20080501

REACTIONS (6)
  - PULMONARY INFARCTION [None]
  - PLEURITIC PAIN [None]
  - BRONCHITIS [None]
  - PULMONARY EMBOLISM [None]
  - DYSPNOEA [None]
  - PNEUMONIA [None]
